FAERS Safety Report 9952552 (Version 1)
Quarter: 2014Q1

REPORT INFORMATION
  Report Type: Report from Study
  Country: US (occurrence: US)
  Receive Date: 20140304
  Receipt Date: 20140304
  Transmission Date: 20141002
  Serious: No
  Sender: FDA-Public Use
  Company Number: US-ABBVIE-13P-163-1072120-00

PATIENT
  Age: 32 Year
  Sex: Female

DRUGS (3)
  1. HUMIRA [Suspect]
     Indication: PSORIATIC ARTHROPATHY
     Dates: start: 2009, end: 201009
  2. HUMIRA [Suspect]
     Dates: start: 201110, end: 201301
  3. CLOBETASOL [Concomitant]
     Indication: PSORIASIS

REACTIONS (5)
  - Endodontic procedure [Unknown]
  - Pruritus [Not Recovered/Not Resolved]
  - Pain [Unknown]
  - Joint range of motion decreased [Unknown]
  - Psoriatic arthropathy [Unknown]
